FAERS Safety Report 5220671-X (Version None)
Quarter: 2007Q1

REPORT INFORMATION
  Report Type: 
  Country: None (occurrence: None)
  Receive Date: 20070126
  Receipt Date: 20070115
  Transmission Date: 20070707
  Serious: Yes (Hospitalization, Other)
  Sender: FDA-Public Use
  Company Number: US-ELI_LILLY_AND_COMPANY-US200609005036

PATIENT
  Age: 71 Year
  Sex: Female
  Weight: 59.41 kg

DRUGS (7)
  1. SYNTHROID [Concomitant]
  2. GABAPENTIN [Concomitant]
  3. ARICEPT                                 /JPN/ [Concomitant]
  4. EFFEXOR [Concomitant]
  5. NAMENDA [Concomitant]
     Dosage: UNK, UNK
  6. FORTEO [Suspect]
     Indication: OSTEOPOROSIS
     Dosage: UNK, UNK
     Dates: start: 20050218
  7. LAMICTAL [Concomitant]
     Indication: CONVULSION

REACTIONS (6)
  - BALANCE DISORDER [None]
  - CONTUSION [None]
  - CONVULSION [None]
  - DISORIENTATION [None]
  - FALL [None]
  - PELVIC FRACTURE [None]
